FAERS Safety Report 7699534-6 (Version None)
Quarter: 2011Q3

REPORT INFORMATION
  Report Type: 
  Country: None (occurrence: None)
  Receive Date: 20110821
  Receipt Date: 20110810
  Transmission Date: 20111222
  Serious: No
  Sender: FDA-Public Use
  Company Number: US-ROXANE LABORATORIES, INC.-2011-RO-01169RO

PATIENT
  Sex: Male

DRUGS (7)
  1. ASPIRIN [Concomitant]
     Dosage: 81 MG
  2. AMLODIPINE [Concomitant]
     Dosage: 10 MG
  3. RANITIDINE [Concomitant]
     Dosage: 300 MG
  4. QUINAPRIL HCL [Concomitant]
     Dosage: 10 MG
  5. ATENOLOL [Concomitant]
     Dosage: 50 MG
  6. FLUTICASONE PROPIONATE [Suspect]
     Indication: NASAL CONGESTION
     Route: 055
  7. NIACIN [Concomitant]
     Dosage: 1000 MG

REACTIONS (2)
  - DRUG INEFFECTIVE [None]
  - EPISTAXIS [None]
